FAERS Safety Report 4923276-0 (Version None)
Quarter: 2006Q1

REPORT INFORMATION
  Report Type: 
  Country: None (occurrence: None)
  Receive Date: 20060227
  Receipt Date: 20060210
  Transmission Date: 20060701
  Serious: Yes (Hospitalization, Other)
  Sender: FDA-Public Use
  Company Number: FR-RB-2768-2006

PATIENT
  Age: 39 Year
  Sex: Male

DRUGS (1)
  1. BUPRENORPHINE HCL [Suspect]
     Indication: DRUG USE FOR UNKNOWN INDICATION
     Dosage: DOSAGE UNKNOWN
     Route: 042

REACTIONS (6)
  - AGITATION [None]
  - CARDIAC MURMUR [None]
  - DYSPHONIA [None]
  - DYSPNOEA EXERTIONAL [None]
  - INTENTIONAL DRUG MISUSE [None]
  - PNEUMONIA [None]
